FAERS Safety Report 9308167 (Version 1)
Quarter: 2013Q2

REPORT INFORMATION
  Report Type: Spontaneous
  Country: FR (occurrence: FR)
  Receive Date: 20130524
  Receipt Date: 20130524
  Transmission Date: 20140414
  Serious: Yes (Other)
  Sender: FDA-Public Use
  Company Number: FR-ASTRAZENECA-2013SE34555

PATIENT
  Age: 23547 Day
  Sex: Female

DRUGS (1)
  1. CRESTOR [Suspect]
     Route: 048
     Dates: start: 20110124, end: 20111028

REACTIONS (2)
  - Amyotrophy [Recovered/Resolved]
  - Myalgia [Recovered/Resolved]
